FAERS Safety Report 7413040-5 (Version None)
Quarter: 2011Q2

REPORT INFORMATION
  Report Type: 
  Country: None (occurrence: None)
  Receive Date: 20110413
  Receipt Date: 20110404
  Transmission Date: 20111010
  Serious: Yes (Other)
  Sender: FDA-Public Use
  Company Number: US-ASTRAZENECA-2011SE05839

PATIENT
  Age: 16760 Day
  Sex: Female
  Weight: 72.6 kg

DRUGS (8)
  1. SEROQUEL [Suspect]
     Indication: BIPOLAR II DISORDER
     Route: 048
     Dates: start: 19990101
  2. PAXIL [Concomitant]
     Indication: BIPOLAR II DISORDER
     Route: 048
     Dates: start: 20050807
  3. TRAZODONE [Concomitant]
     Indication: BIPOLAR II DISORDER
     Route: 048
     Dates: start: 20050811
  4. LITHIUM [Concomitant]
     Indication: BIPOLAR II DISORDER
     Route: 048
     Dates: start: 20060207
  5. ABILIFY [Concomitant]
     Indication: BIPOLAR II DISORDER
     Route: 048
  6. SEROQUEL [Suspect]
     Route: 048
     Dates: start: 20050812
  7. SEROQUEL [Suspect]
     Route: 048
     Dates: start: 20050812
  8. SEROQUEL [Suspect]
     Indication: BIPOLAR I DISORDER
     Route: 048
     Dates: start: 19990101

REACTIONS (3)
  - FIBULA FRACTURE [None]
  - ANKLE FRACTURE [None]
  - FALL [None]
